FAERS Safety Report 9215422 (Version 1)
Quarter: 2013Q2

REPORT INFORMATION
  Report Type: Report from Study
  Country: DE (occurrence: DE)
  Receive Date: 20130405
  Receipt Date: 20130405
  Transmission Date: 20140414
  Serious: Yes (Hospitalization)
  Sender: FDA-Public Use
  Company Number: DE-AMGEN-UK220616

PATIENT
  Age: 76 Year
  Sex: Male

DRUGS (18)
  1. DENOSUMAB [Suspect]
     Indication: PROSTATE CANCER
     Dosage: UNK UNK, Q4WK
     Route: 058
     Dates: start: 20070403, end: 20070521
  2. VERAPAMIL [Concomitant]
     Dosage: 80 MG, BID
     Route: 048
     Dates: start: 1992
  3. SPIRONOLACTONE [Concomitant]
     Dosage: 50 MG, QD
     Dates: start: 1992
  4. XIPAMIDE [Concomitant]
     Dosage: 20 MG, QD
     Route: 048
     Dates: start: 1992
  5. ALLOPURINOL [Concomitant]
     Dosage: 100 MG, QD
     Route: 048
     Dates: start: 1992
  6. PHENPROCOUMON [Concomitant]
     Dosage: UNK UNK, UNK
     Route: 048
     Dates: start: 2003, end: 20070504
  7. DICLOFENAC [Concomitant]
     Dosage: 75 MG, BID
     Route: 048
     Dates: start: 20070330, end: 200704
  8. CALCIUM CARBONATE [Concomitant]
     Dosage: UNK UNK, UNK
     Route: 048
     Dates: start: 20070403
  9. VOLTAREN RESINAT [Concomitant]
     Dosage: 75 MG, UNK
     Route: 048
     Dates: start: 20070413
  10. SODIUM PICOSULFATE [Concomitant]
     Dosage: 7.5 ML, UNK
     Route: 048
     Dates: start: 20070413, end: 20070413
  11. ORPHENADRINE CITRATE [Concomitant]
     Dosage: 100 MG, UNK
     Route: 048
     Dates: start: 20070416, end: 20070417
  12. METAMIZOLE SODIUM [Concomitant]
     Dosage: UNK UNK, UNK
     Route: 048
     Dates: start: 20070418
  13. IBUPROFEN [Concomitant]
     Dosage: 600 MG, UNK
     Route: 048
     Dates: start: 20070419
  14. MOVICOL [Concomitant]
     Dosage: UNK UNK, UNK
     Dates: start: 20070424
  15. PANTOPRAZOLE [Concomitant]
     Dosage: 40 MG, UNK
     Route: 048
     Dates: start: 20070425
  16. HEPARIN-FRACTION, CALCIUM SALT [Concomitant]
     Dosage: UNK UNK, UNK
     Route: 058
     Dates: start: 20070501
  17. PREDNISONE [Concomitant]
     Dosage: 20 MG, UNK
     Route: 048
     Dates: start: 20070520
  18. CORTICOSTEROID NOS [Concomitant]

REACTIONS (1)
  - Myalgia [Recovered/Resolved with Sequelae]
